FAERS Safety Report 25628388 (Version 1)
Quarter: 2025Q3

REPORT INFORMATION
  Report Type: Report from Study
  Country: US (occurrence: US)
  Receive Date: 20250731
  Receipt Date: 20250731
  Transmission Date: 20251020
  Serious: Yes (Hospitalization, Other)
  Sender: ABBVIE
  Company Number: US-ABBVIE-6352058

PATIENT
  Age: 90 Year
  Sex: Female

DRUGS (2)
  1. SKYRIZI [Suspect]
     Active Substance: RISANKIZUMAB-RZAA
     Indication: Product used for unknown indication
     Route: 058
     Dates: end: 20250616
  2. SKYRIZI [Suspect]
     Active Substance: RISANKIZUMAB-RZAA
     Route: 058

REACTIONS (9)
  - Unresponsive to stimuli [Unknown]
  - Thyroid hormones increased [Not Recovered/Not Resolved]
  - Peripheral swelling [Recovering/Resolving]
  - Thyroid hormones decreased [Recovered/Resolved]
  - Fall [Recovered/Resolved]
  - Hypoglycaemia [Unknown]
  - Diabetes mellitus [Unknown]
  - Fall [Recovered/Resolved]
  - Contusion [Unknown]

NARRATIVE: CASE EVENT DATE: 20250601
